FAERS Safety Report 7832576-6 (Version None)
Quarter: 2011Q4

REPORT INFORMATION
  Report Type: 
  Country: None (occurrence: None)
  Receive Date: 20111024
  Receipt Date: 20111012
  Transmission Date: 20120403
  Serious: Yes (Hospitalization)
  Sender: FDA-Public Use
  Company Number: US-BIOGENIDEC-2011BI027900

PATIENT
  Age: 62 Year
  Sex: Female

DRUGS (10)
  1. MULTI-VITAMIN [Concomitant]
  2. CRANBERRY TABLET [Concomitant]
  3. AVONEX [Suspect]
     Indication: MULTIPLE SCLEROSIS
     Route: 030
     Dates: start: 19960101
  4. AVONEX [Suspect]
     Route: 030
  5. IRON TABLET [Concomitant]
  6. COPAXONE [Concomitant]
     Indication: MULTIPLE SCLEROSIS
     Dates: start: 20020101, end: 20020101
  7. VITAMIN D [Concomitant]
  8. VERAPAMIL [Concomitant]
     Indication: HYPERTENSION
  9. CALCIUM CARBONATE [Concomitant]
  10. FISH OIL [Concomitant]

REACTIONS (11)
  - MULTIPLE SCLEROSIS [None]
  - NERVE CONDUCTION STUDIES ABNORMAL [None]
  - HYPOTHYROIDISM [None]
  - FALL [None]
  - DIABETES MELLITUS [None]
  - BLOOD POTASSIUM DECREASED [None]
  - ASTHENIA [None]
  - DEPRESSION [None]
  - HEAD INJURY [None]
  - OBESITY [None]
  - MUSCLE SPASMS [None]
